FAERS Safety Report 6390782-4 (Version None)
Quarter: 2009Q4

REPORT INFORMATION
  Report Type: 
  Country: None (occurrence: None)
  Receive Date: 20091001
  Receipt Date: 20090720
  Transmission Date: 20100525
  Serious: No
  Sender: FDA-Public Use
  Company Number: 1000007612

PATIENT
  Age: 50 Year
  Sex: Male

DRUGS (4)
  1. BYSTOLIC [Suspect]
     Indication: HYPERTENSION
     Dosage: 5 MG (5 MG, 1 IN 1 D), ORAL : 10 MG (10 MG, 1 IN 1 D), ORAL
     Route: 048
     Dates: start: 20080211, end: 20081014
  2. BYSTOLIC [Suspect]
     Indication: HYPERTENSION
     Dosage: 5 MG (5 MG, 1 IN 1 D), ORAL : 10 MG (10 MG, 1 IN 1 D), ORAL
     Route: 048
     Dates: start: 20081015
  3. TEKTURNA [Concomitant]
  4. ASPIRIN [Concomitant]

REACTIONS (2)
  - ARTHRALGIA [None]
  - JOINT SWELLING [None]
